FAERS Safety Report 26040988 (Version 1)
Quarter: 2025Q4

REPORT INFORMATION
  Report Type: Spontaneous
  Country: US (occurrence: None)
  Receive Date: 20251112
  Receipt Date: 20251112
  Transmission Date: 20260118
  Serious: No
  Sender: FDA-CTU
  Company Number: None

PATIENT
  Age: 67 Year
  Sex: Female
  Weight: 56.25 kg

DRUGS (4)
  1. JARDIANCE [Suspect]
     Active Substance: EMPAGLIFLOZIN
  2. CALCIUM [Concomitant]
     Active Substance: CALCIUM
  3. centrum daily vitamin [Concomitant]
  4. VITAMIN B [Concomitant]
     Active Substance: VITAMIN B

REACTIONS (4)
  - Abdominal distension [None]
  - Constipation [None]
  - Diarrhoea [None]
  - Burning sensation [None]

NARRATIVE: CASE EVENT DATE: 20240706
